FAERS Safety Report 6522885-5 (Version None)
Quarter: 2009Q4

REPORT INFORMATION
  Report Type: 
  Country: None (occurrence: None)
  Receive Date: 20091222
  Receipt Date: 20091203
  Transmission Date: 20100525
  Serious: Yes (Other)
  Sender: FDA-Public Use
  Company Number: 2009003741

PATIENT
  Age: 80 Year
  Sex: Female
  Weight: 48.8 kg

DRUGS (8)
  1. ERLOTINIB HYDROCHLORIDE [Suspect]
     Indication: LUNG ADENOCARCINOMA
     Dosage: 150 MG, QD, ORAL
     Route: 048
     Dates: start: 20090125, end: 20090202
  2. FAMOTIDINE [Concomitant]
  3. AMLODIPINE BESYLATE [Concomitant]
  4. DASEN (SERRAPETASE) [Concomitant]
  5. SPIRONOLACTONE [Concomitant]
  6. BIOFERMIN (BIOFERMIN) [Concomitant]
  7. BETAMETHASONE [Concomitant]
  8. GLYCEROL 2.6% [Concomitant]

REACTIONS (4)
  - CYTOMEGALOVIRUS INFECTION [None]
  - DISEASE COMPLICATION [None]
  - HISTIOCYTOSIS HAEMATOPHAGIC [None]
  - MALIGNANT NEOPLASM PROGRESSION [None]
